FAERS Safety Report 15673289 (Version 7)
Quarter: 2021Q1

REPORT INFORMATION
  Report Type: Spontaneous
  Country: US (occurrence: US)
  Receive Date: 20181129
  Receipt Date: 20210222
  Transmission Date: 20210419
  Serious: No
  Sender: FDA-Public Use
  Company Number: US-PFIZER INC-2018483013

PATIENT
  Age: 62 Year
  Sex: Female
  Weight: 88.45 kg

DRUGS (3)
  1. XELJANZ XR [Suspect]
     Active Substance: TOFACITINIB CITRATE
     Indication: RHEUMATOID ARTHRITIS
     Dosage: 11 MG, 1X/DAY
     Route: 048
     Dates: start: 20181014
  2. PRESERVISION LUTEIN [Concomitant]
     Active Substance: MINERALS\VITAMINS
     Dosage: UNK [226?200]
  3. XELJANZ XR [Suspect]
     Active Substance: TOFACITINIB CITRATE
     Dosage: 11 MG, 1X/DAY
     Route: 048
     Dates: start: 20181014

REACTIONS (7)
  - Thinking abnormal [Unknown]
  - Flatulence [Not Recovered/Not Resolved]
  - Condition aggravated [Unknown]
  - Abdominal pain upper [Unknown]
  - Groin pain [Unknown]
  - Blood pressure increased [Unknown]
  - Stomatitis [Unknown]

NARRATIVE: CASE EVENT DATE: 2018
